FAERS Safety Report 13473149 (Version 2)
Quarter: 2017Q2

REPORT INFORMATION
  Report Type: Spontaneous
  Country: US (occurrence: US)
  Receive Date: 20170424
  Receipt Date: 20170515
  Transmission Date: 20170830
  Serious: No
  Sender: FDA-Public Use
  Company Number: US-PFIZER INC-2017179473

PATIENT
  Age: 64 Year
  Sex: Male

DRUGS (26)
  1. GABAPENTIN. [Suspect]
     Active Substance: GABAPENTIN
     Indication: NEURALGIA
     Dosage: 300MG CAPSULE-2 CAPSULES EVERY 8 HOURS
     Dates: start: 200409, end: 20170329
  2. CLOTRIMAZOLE AND BETAMETHASONE DIPROPIONATE [Concomitant]
     Active Substance: BETAMETHASONE\BETAMETHASONE DIPROPIONATE\CLOTRIMAZOLE
     Dosage: UNK UNK, AS NEEDED, [BETAMETHASONE DIPROPIONATE - 0.05 %, CLOTRIMAZOLE -1 %], (APPLY TO EARS)
  3. METRONIDAZOLE. [Concomitant]
     Active Substance: METRONIDAZOLE
     Dosage: UNK, 2X/DAY
     Route: 061
  4. OMEPRAZOLE. [Concomitant]
     Active Substance: OMEPRAZOLE
     Dosage: 40 MG, 2X/DAY
  5. CRESTOR [Concomitant]
     Active Substance: ROSUVASTATIN CALCIUM
     Dosage: 10 MG, 1X/DAY
  6. ACETAMINOPHEN. [Concomitant]
     Active Substance: ACETAMINOPHEN
     Dosage: 500 MG, UNK, (NOT TO EXCEED 3000 MG PER DAY)
  7. CLARITIN [Concomitant]
     Active Substance: LORATADINE
     Dosage: 10 MG, AS NEEDED (10 MG, 1 TAB /DAY (IF NEEDED))
  8. GABAPENTIN. [Suspect]
     Active Substance: GABAPENTIN
     Indication: BACK PAIN
     Dosage: 2 CAPSULE (300 MG) 3 TIMES A DAY ON EVERY 8 HOURS
  9. AMOXICILLIN. [Concomitant]
     Active Substance: AMOXICILLIN
     Dosage: 2000 MG, UNK, (4 CAPSULES /TAKEN 1 HOUR BEFORE DENTAL OR OTHER PROCEDURE)
  10. COQ 10 [Concomitant]
     Active Substance: UBIDECARENONE
     Dosage: 200 MG, 1X/DAY
  11. MAGNESIUM OXIDE. [Concomitant]
     Active Substance: MAGNESIUM OXIDE
     Dosage: 400 MG, UNK (1 SOFT GEL /4 X WEEK)
  12. GABAPENTIN. [Suspect]
     Active Substance: GABAPENTIN
     Indication: NEUROPATHY PERIPHERAL
     Dosage: 800 MG, 3X/DAY
  13. DOCUSATE SOD [Concomitant]
     Indication: FAECES HARD
     Dosage: UNK, AS NEEDED, (1 TO 3 SOFT GELS /DAY (IF NEEDED))
  14. FLUTICASONE PROPIONATE. [Concomitant]
     Active Substance: FLUTICASONE PROPIONATE
     Dosage: 4 DF, 2X/DAY(2 SPRAYS IN EACH NOSTRIL )
     Route: 045
  15. PROBIOTIC [Concomitant]
     Active Substance: PROBIOTICS NOS
     Dosage: 1 DF, DAILY
  16. NEURONTIN [Suspect]
     Active Substance: GABAPENTIN
     Dosage: UNK
  17. PROAIR HFA [Concomitant]
     Active Substance: ALBUTEROL SULFATE
     Dosage: 4 DF, AS NEEDED (2 PUFFS IN THE MORNING AND 2 PUFFS AT NIGHT (AS NEEDED))
     Route: 055
  18. LYRICA [Concomitant]
     Active Substance: PREGABALIN
     Dosage: 100 MG, 3X/DAY
  19. COUMADIN [Concomitant]
     Active Substance: WARFARIN SODIUM
     Dosage: 3 MG, 1X/DAY
  20. ASPIRIN. [Concomitant]
     Active Substance: ASPIRIN
     Dosage: 81 MG, 1X/DAY
  21. VITAMIN C [Concomitant]
     Active Substance: ASCORBIC ACID
     Dosage: 1000 MG, DAILY
  22. AZELASTINE HCL [Concomitant]
     Active Substance: AZELASTINE HYDROCHLORIDE
     Dosage: 4 DF, 2X/DAY  (2 SPRAYS IN EACH NOSTRIL )
     Route: 045
  23. CEREFOLIN NAC [Concomitant]
     Dosage: 1 DF, 1X/DAY
  24. RYTHMOL [Concomitant]
     Active Substance: PROPAFENONE HYDROCHLORIDE
     Dosage: 325 MG, 2X/DAY
  25. CALCIUM +D3 [Concomitant]
     Active Substance: CALCIUM\CHOLECALCIFEROL
     Dosage: 600 MG, UNK, (1 TAB /3 X WEEK)
  26. DOXYCYCLINE HYCLATE. [Concomitant]
     Active Substance: DOXYCYCLINE HYCLATE
     Dosage: 100 MG, 1X/DAY

REACTIONS (8)
  - Back pain [Unknown]
  - Amnesia [Unknown]
  - Dizziness [Recovered/Resolved]
  - Condition aggravated [Unknown]
  - Pain [Unknown]
  - Drug ineffective for unapproved indication [Unknown]
  - Somnolence [Unknown]
  - Neuralgia [Unknown]

NARRATIVE: CASE EVENT DATE: 2004
